FAERS Safety Report 5488644-X (Version None)
Quarter: 2007Q4

REPORT INFORMATION
  Report Type: 
  Country: None (occurrence: None)
  Receive Date: 20071017
  Receipt Date: 20070320
  Transmission Date: 20080405
  Serious: No
  Sender: FDA-Public Use
  Company Number: A0641882A

PATIENT
  Age: 16 Month
  Sex: Male

DRUGS (1)
  1. CEFTIN [Suspect]
     Indication: OTITIS MEDIA ACUTE
     Dosage: .5TSP TWICE PER DAY
     Route: 048
     Dates: start: 20070302, end: 20070306

REACTIONS (3)
  - MEDICATION ERROR [None]
  - RETCHING [None]
  - VOMITING [None]
